FAERS Safety Report 7503124-5 (Version None)
Quarter: 2011Q2

REPORT INFORMATION
  Report Type: 
  Country: None (occurrence: None)
  Receive Date: 20110525
  Receipt Date: 20110524
  Transmission Date: 20111010
  Serious: Yes (Hospitalization)
  Sender: FDA-Public Use
  Company Number: ES-PFIZER INC-2011111332

PATIENT
  Age: 53 Year
  Sex: Male

DRUGS (6)
  1. BOI K [Concomitant]
     Dosage: 1 DF, 3X/DAY
  2. FUROSEMIDE [Interacting]
     Indication: HYPERTENSION
     Dosage: 40 MG, 1X/DAY
     Route: 048
     Dates: start: 20100101, end: 20101225
  3. ENALAPRIL [Concomitant]
     Dosage: 20 MG, 1X/DAY
  4. BECOZYME C FORTE [Concomitant]
     Dosage: 1 DF, 1X/DAY
  5. IRON [Concomitant]
     Route: 048
  6. ALDACTONE [Suspect]
     Dosage: 150 MG, 1X/DAY
     Route: 048
     Dates: start: 20100101, end: 20101225

REACTIONS (3)
  - HEPATIC ENCEPHALOPATHY [None]
  - HYPONATRAEMIA [None]
  - DRUG INTERACTION [None]
